FAERS Safety Report 9363634 (Version 2)
Quarter: 2013Q1

REPORT INFORMATION
  Report Type: Spontaneous
  Country: IT (occurrence: None)
  Receive Date: 20130311
  Receipt Date: 20130318
  Transmission Date: 20140127
  Serious: Yes (Death, Hospitalization, Other)
  Sender: FDA-Public Use
  Company Number: IT-2013-0077

PATIENT
  Age: 71 Year
  Sex: Male

DRUGS (3)
  1. NAVELBINE (VINORELBINE TARTRATE) INFUSION [Suspect]
     Indication: LUNG NEOPLASM MALIGNANT
     Dosage: 37 MG, CYCLICAL (1/21), INTRAVENOUS
     Dates: start: 20121221
  2. ATENOLOL (ATENOLOL) [Concomitant]
  3. LASIX (FUROSEMIDE SODIUM) [Concomitant]

REACTIONS (10)
  - Bone marrow failure [None]
  - Febrile neutropenia [None]
  - C-reactive protein increased [None]
  - Blood bilirubin increased [None]
  - Blood glucose increased [None]
  - Hypokalaemia [None]
  - Hyponatraemia [None]
  - Blood urea increased [None]
  - Hypotension [None]
  - Hypertension [None]
